FAERS Safety Report 17854672 (Version 2)
Quarter: 2020Q3

REPORT INFORMATION
  Report Type: Spontaneous
  Country: US (occurrence: US)
  Receive Date: 20200603
  Receipt Date: 20200720
  Transmission Date: 20201103
  Serious: No
  Sender: FDA-Public Use
  Company Number: US-ASTRAZENECA-2020SE61455

PATIENT
  Sex: Female

DRUGS (1)
  1. SYMBICORT [Suspect]
     Active Substance: BUDESONIDE\FORMOTEROL FUMARATE DIHYDRATE
     Indication: CHRONIC OBSTRUCTIVE PULMONARY DISEASE
     Dosage: 160/4.5 MCG 120 INHALATIONS,UNKNOWN FREQUENCY. UNKNOWN
     Route: 055
     Dates: start: 20200405

REACTIONS (3)
  - Panic attack [Unknown]
  - Product taste abnormal [Unknown]
  - Taste disorder [Unknown]

NARRATIVE: CASE EVENT DATE: 20200504
